FAERS Safety Report 6637312 (Version 13)
Quarter: 2014Q2

REPORT INFORMATION
  Report Type: Spontaneous
  Country: FR (occurrence: FR)
  Receive Date: 20080509
  Receipt Date: 20140404
  Transmission Date: 20141212
  Serious: Yes (Hospitalization, Disabling, Other)
  Sender: FDA-Public Use
  Company Number: FR-PFIZER INC-2008037708

PATIENT
  Age: 20 Year
  Sex: Male

DRUGS (28)
  1. DEPO-MEDROL [Suspect]
     Indication: ACUTE LYMPHOCYTIC LEUKAEMIA
     Dosage: UNK
     Route: 037
     Dates: start: 20020216
  2. CORTANCYL [Suspect]
     Indication: ACUTE LYMPHOCYTIC LEUKAEMIA
     Dosage: 40 MG/M2, 7 DAYS/MONTH
     Dates: start: 20020216, end: 200403
  3. DEXAMETHASONE [Suspect]
     Indication: ACUTE LYMPHOCYTIC LEUKAEMIA
     Dosage: UNK
     Route: 042
     Dates: start: 20020216, end: 200402
  4. PURINETHOL [Concomitant]
     Indication: ACUTE LYMPHOCYTIC LEUKAEMIA
     Dosage: UNK
     Route: 048
     Dates: end: 200403
  5. CYCLOPHOSPHAMIDE [Concomitant]
     Dosage: UNK
  6. CYTARABINE [Concomitant]
     Dosage: UNK
  7. METHOTREXATE [Concomitant]
     Indication: ACUTE LYMPHOCYTIC LEUKAEMIA
     Dosage: UNK
     Route: 048
     Dates: end: 200403
  8. METOCLOPRAMIDE [Concomitant]
     Dosage: UNK
  9. FILGRASTIM [Concomitant]
     Dosage: UNK
  10. VINCRISTINE SULFATE [Concomitant]
     Dosage: UNK
  11. ETOPOSIDE [Concomitant]
     Dosage: UNK
  12. LENOGRASTIM [Concomitant]
     Dosage: UNK
  13. LORAZEPAM [Concomitant]
     Dosage: UNK
  14. CEFTAZIDIME PENTAHYDRATE [Concomitant]
     Dosage: UNK
  15. CEFUROXIME AXETIL [Concomitant]
     Dosage: UNK
  16. CIPROFLOXACIN [Concomitant]
     Dosage: UNK
  17. TRAMADOL [Concomitant]
     Dosage: UNK
  18. TETRAZEPAM [Concomitant]
     Dosage: UNK
  19. OMEPRAZOLE [Concomitant]
     Dosage: UNK
  20. ALL OTHER THERAPEUTIC PRODUCTS [Concomitant]
     Dosage: UNK
  21. FLUCONAZOLE [Concomitant]
     Dosage: UNK
  22. DOMPERIDONE [Concomitant]
     Dosage: UNK
  23. CODEINE PHOSPHATE/PARACETAMOL [Concomitant]
     Dosage: UNK
  24. BROMAZEPAM [Concomitant]
     Dosage: UNK
  25. CALCIUM LEVOFOLINATE [Concomitant]
     Dosage: UNK
  26. AMITRIPTYLINE HYDROCHLORIDE [Concomitant]
     Dosage: UNK
  27. DICLOFENAC [Concomitant]
     Dosage: UNK
  28. ESOMEPRAZOLE MAGNESIUM [Concomitant]
     Dosage: UNK

REACTIONS (18)
  - Off label use [Unknown]
  - Osteonecrosis [Not Recovered/Not Resolved]
  - Convulsion [Recovered/Resolved]
  - Leukopenia [Recovered/Resolved]
  - Anaemia [Recovered/Resolved]
  - Bone marrow failure [Recovered/Resolved]
  - Anxiety [Unknown]
  - Depression [Unknown]
  - Sinusitis [Unknown]
  - Ear infection [Unknown]
  - Monocytosis [Unknown]
  - Hypogammaglobulinaemia [Unknown]
  - Hypertriglyceridaemia [Unknown]
  - Hypercholesterolaemia [Unknown]
  - Condition aggravated [Unknown]
  - Poor quality sleep [Unknown]
  - Quality of life decreased [Unknown]
  - Libido decreased [Unknown]
